FAERS Safety Report 4269417-2 (Version None)
Quarter: 2004Q1

REPORT INFORMATION
  Report Type: 
  Country: None (occurrence: None)
  Receive Date: 20040112
  Receipt Date: 20040112
  Transmission Date: 20041129
  Serious: Yes (Hospitalization)
  Sender: FDA-Public Use
  Company Number: None

PATIENT
  Age: 53 Year
  Sex: Male

DRUGS (9)
  1. POTASSIUM [Suspect]
     Indication: HYPOKALAEMIA
     Dosage: 80 MEQ QD
  2. SPIRONOLACTONE [Suspect]
     Indication: POLYURIA
  3. ASCORBIC ACID [Concomitant]
  4. THIAMINE [Concomitant]
  5. M.V.I. [Concomitant]
  6. FERROUS GLUC. [Concomitant]
  7. FOLIC [Concomitant]
  8. LASIX [Concomitant]
  9. RABEPRAZOLE SODIUM [Concomitant]

REACTIONS (1)
  - HYPERKALAEMIA [None]
